FAERS Safety Report 8841004 (Version 1)
Quarter: 2012Q4

REPORT INFORMATION
  Report Type: 
  Country: US (occurrence: US)
  Receive Date: 20121015
  Receipt Date: 20121015
  Transmission Date: 20130627
  Serious: Yes (Death)
  Sender: FDA-Public Use
  Company Number: US-ASTRAZENECA-2012SE78195

PATIENT
  Age: 50 Year

DRUGS (1)
  1. BRILINTA [Suspect]
     Indication: ANGINA UNSTABLE
     Route: 048

REACTIONS (1)
  - Coronary artery restenosis [Fatal]
